FAERS Safety Report 13998831 (Version 1)
Quarter: 2017Q3

REPORT INFORMATION
  Report Type: Spontaneous
  Country: US (occurrence: US)
  Receive Date: 20170921
  Receipt Date: 20170921
  Transmission Date: 20171128
  Serious: No
  Sender: FDA-Public Use
  Company Number: US-NEUROCRINE BIOSCIENCES INC.-2017NBI00607

PATIENT
  Age: 29 Year
  Sex: Male
  Weight: 81.72 kg

DRUGS (7)
  1. INGREZZA [Suspect]
     Active Substance: VALBENAZINE
     Indication: TARDIVE DYSKINESIA
     Route: 048
     Dates: start: 20170719, end: 20170723
  2. AMBIEN [Concomitant]
     Active Substance: ZOLPIDEM TARTRATE
  3. ZYPREXA [Concomitant]
     Active Substance: OLANZAPINE
  4. ONDANSETRON [Concomitant]
     Active Substance: ONDANSETRON
  5. INGREZZA [Suspect]
     Active Substance: VALBENAZINE
     Indication: DYSTONIA
     Route: 048
     Dates: start: 20170723, end: 20170801
  6. INGREZZA [Suspect]
     Active Substance: VALBENAZINE
     Dates: start: 20170805
  7. VALIUM [Concomitant]
     Active Substance: DIAZEPAM

REACTIONS (2)
  - Sedation [Recovered/Resolved]
  - Incorrect dose administered [Unknown]

NARRATIVE: CASE EVENT DATE: 20170805
